FAERS Safety Report 5744377-3 (Version None)
Quarter: 2008Q2

REPORT INFORMATION
  Report Type: 
  Country: None (occurrence: None)
  Receive Date: 20080520
  Receipt Date: 20080509
  Transmission Date: 20081010
  Serious: Yes (Hospitalization)
  Sender: FDA-Public Use
  Company Number: DE-ELI_LILLY_AND_COMPANY-DE200805002702

PATIENT
  Age: 67 Year
  Sex: Male

DRUGS (6)
  1. BYETTA [Suspect]
     Indication: TYPE 2 DIABETES MELLITUS
     Dosage: 10 UG, 2/D
     Route: 065
     Dates: start: 20070711, end: 20080426
  2. ENALAPRIL MALEATE [Concomitant]
     Dosage: 10 U, UNKNOWN
     Route: 065
  3. BISO LICH [Concomitant]
     Dosage: 5 U, UNKNOWN
     Route: 065
  4. ASPIRIN [Concomitant]
     Dosage: UNK, UNKNOWN
     Route: 065
  5. GLIMEPIRIDE [Concomitant]
     Dosage: 2 MG, UNKNOWN
     Route: 065
  6. METFORMIN HCL [Concomitant]
     Dosage: 1000 U, UNKNOWN
     Route: 065

REACTIONS (2)
  - MALAISE [None]
  - SYNCOPE [None]
